FAERS Safety Report 4765060-7 (Version None)
Quarter: 2005Q3

REPORT INFORMATION
  Report Type: 
  Country: None (occurrence: None)
  Receive Date: 20050907
  Receipt Date: 20050827
  Transmission Date: 20060218
  Serious: Yes (Hospitalization, Disabling, Congenital Anomaly)
  Sender: FDA-Public Use
  Company Number: 2005076124

PATIENT
  Sex: Female
  Weight: 72.5755 kg

DRUGS (11)
  1. XALATAN [Suspect]
     Indication: GLAUCOMA
     Dosage: 3 MCG (1.5 MCG, 1 IN 1 D)
  2. ALL OTHER THERAPUETIC PRODUCTS (ALL OTHER THERAPEUTIC PRODUCTS) [Suspect]
     Indication: ILL-DEFINED DISORDER
     Dates: start: 20050509
  3. HYDROCODONE W/ACETAMINOPHEN (HYDROCODONE BITARTRATE, PARCETAMOL) [Concomitant]
  4. HYDROCHLOROTHIAZIDE [Concomitant]
  5. ALPHAGAN [Concomitant]
  6. TEARS NATURALE (DEXTRAN 70, HYPROMELLOSE) [Concomitant]
  7. VERELAN (VERAPAML HYDROCHLORIDE) [Concomitant]
  8. LUTEIN (XANTHOPHYLL) [Concomitant]
  9. VITAMINS (VITAMINS) [Concomitant]
  10. PRESERVISION SOFTGELS WITH LUTEIN (MINERALS NOS, VITAMINS NOS, XANTHOP [Concomitant]
  11. SYNTHROID [Concomitant]

REACTIONS (12)
  - BACK PAIN [None]
  - BLINDNESS [None]
  - BODY HEIGHT DECREASED [None]
  - HIP ARTHROPLASTY [None]
  - MACULAR DEGENERATION [None]
  - MECHANICAL COMPLICATION OF IMPLANT [None]
  - PAIN [None]
  - POST PROCEDURAL COMPLICATION [None]
  - PROCEDURAL PAIN [None]
  - RETINAL HAEMORRHAGE [None]
  - SKIN DISCOLOURATION [None]
  - THYROID DISORDER [None]
